FAERS Safety Report 6141531-6 (Version None)
Quarter: 2009Q2

REPORT INFORMATION
  Report Type: 
  Country: None (occurrence: None)
  Receive Date: 20090402
  Receipt Date: 20090326
  Transmission Date: 20091009
  Serious: Yes (Hospitalization)
  Sender: FDA-Public Use
  Company Number: FR-WYE-H08763809

PATIENT
  Sex: Female

DRUGS (7)
  1. CORDARONE [Suspect]
     Indication: ATRIAL FIBRILLATION
     Dosage: NOT PROVIDED
     Dates: start: 20071201, end: 20071215
  2. CORDARONE [Suspect]
     Dosage: NOT PROVIDED
     Dates: start: 20071218
  3. IDEOS [Concomitant]
     Dosage: NOT PROVIDED
     Route: 048
  4. KARDEGIC [Concomitant]
  5. COUMADIN [Concomitant]
     Dosage: NOT PROVIDED
     Route: 048
  6. FLECAINE [Suspect]
     Indication: ATRIAL FIBRILLATION
     Route: 048
     Dates: start: 20071215, end: 20071218
  7. TENORMIN [Suspect]
     Indication: ATRIAL FIBRILLATION
     Route: 048
     Dates: start: 20071215, end: 20081218

REACTIONS (4)
  - BRADYCARDIA [None]
  - HYPERHIDROSIS [None]
  - MALAISE [None]
  - PALLOR [None]
